FAERS Safety Report 8851397 (Version 1)
Quarter: 2012Q4

REPORT INFORMATION
  Report Type: 
  Country: US (occurrence: US)
  Receive Date: 20121022
  Receipt Date: 20121022
  Transmission Date: 20130627
  Serious: Yes (Hospitalization, Other)
  Sender: FDA-Public Use
  Company Number: US-ROCHE-GNE099965

PATIENT
  Sex: Male
  Weight: 135.14 kg

DRUGS (5)
  1. NUTROPIN AQ [Suspect]
     Indication: HYPOPITUITARISM
     Route: 058
     Dates: start: 20000113
  2. NUTROPIN [Suspect]
     Indication: HYPOPITUITARISM
     Route: 065
  3. ANTICONVULSANT [Concomitant]
  4. HYDROCORTISONE [Concomitant]
  5. DDAVP [Concomitant]

REACTIONS (7)
  - Epiphysiolysis [Recovered/Resolved]
  - Hip surgery [Unknown]
  - Arthralgia [Unknown]
  - Foot fracture [Unknown]
  - Balance disorder [Unknown]
  - Dysstasia [Unknown]
  - Gait disturbance [Unknown]
